FAERS Safety Report 9259247 (Version 1)
Quarter: 2013Q2

REPORT INFORMATION
  Report Type: Spontaneous
  Country: US (occurrence: US)
  Receive Date: 20130426
  Receipt Date: 20130426
  Transmission Date: 20140414
  Serious: No
  Sender: FDA-Public Use
  Company Number: US-ASTRAZENECA-2013SE23698

PATIENT
  Age: 61 Year
  Sex: Male
  Weight: 95.3 kg

DRUGS (5)
  1. NEXIUM [Suspect]
     Indication: BARRETT^S OESOPHAGUS
     Route: 048
     Dates: start: 2008
  2. LIPITOR [Concomitant]
  3. NORVASC [Concomitant]
  4. HCTZ [Concomitant]
  5. MAVIK [Concomitant]

REACTIONS (3)
  - Dyspepsia [Recovering/Resolving]
  - Drug dose omission [Unknown]
  - Off label use [Unknown]
